FAERS Safety Report 11799393 (Version 1)
Quarter: 2015Q4

REPORT INFORMATION
  Report Type: Report from Study
  Country: US (occurrence: US)
  Receive Date: 20151203
  Receipt Date: 20151203
  Transmission Date: 20160305
  Serious: No
  Sender: FDA-Public Use
  Company Number: US-AMGEN-USASL2015115330

PATIENT
  Age: 73 Year
  Sex: Female

DRUGS (1)
  1. REPATHA [Suspect]
     Active Substance: EVOLOCUMAB
     Indication: PRODUCT USED FOR UNKNOWN INDICATION
     Dosage: 140 MG, Q2WK
     Route: 065
     Dates: start: 20151016

REACTIONS (11)
  - Weight decreased [Unknown]
  - Injection site swelling [Unknown]
  - Device issue [Unknown]
  - Arthralgia [Recovered/Resolved]
  - Fear [Not Recovered/Not Resolved]
  - Wrong technique in product usage process [Unknown]
  - Incorrect product storage [Unknown]
  - Drug dose omission [Unknown]
  - Injection site mass [Unknown]
  - Drug administered at inappropriate site [Unknown]
  - Underdose [Unknown]

NARRATIVE: CASE EVENT DATE: 201510
